FAERS Safety Report 9716007 (Version 1)
Quarter: 2013Q4

REPORT INFORMATION
  Report Type: Spontaneous
  Country: US (occurrence: US)
  Receive Date: 20131127
  Receipt Date: 20131127
  Transmission Date: 20140711
  Serious: No
  Sender: FDA-Public Use
  Company Number: US-BAYER-2013-145075

PATIENT
  Age: 71 Year
  Sex: Female
  Weight: 79.37 kg

DRUGS (18)
  1. ALEVE CAPLET [Suspect]
     Indication: ARTHRITIS
     Dosage: 2 DF, QD
     Route: 048
  2. ALEVE CAPLET [Suspect]
     Indication: ARTHRITIS
     Dosage: 3 DF, 2 IN THE MORNING AND 1 AT NIGHT
     Route: 048
     Dates: start: 201207, end: 201308
  3. ALEVE CAPLET [Suspect]
     Indication: ARTHRITIS
     Dosage: 4 DF, IN 2 AND HALF HOURS
     Route: 048
     Dates: start: 20131125, end: 20131125
  4. CLONIDINE [Concomitant]
  5. ORENCIA [Concomitant]
  6. LOSARTAN [Concomitant]
  7. METOPROLOL [Concomitant]
  8. HYDROCHLOROTHIAZIDE [Concomitant]
  9. LEVOTHYROXINE [Concomitant]
  10. OMEPRAZOLE [Concomitant]
  11. FOLIC ACID [Concomitant]
  12. FISH OIL [Concomitant]
  13. MULTIVITAMIN [Concomitant]
  14. MAGNESIUM [Concomitant]
  15. VITAMIN B12 [Concomitant]
  16. VITAMIN E [Concomitant]
  17. ALLEGRA [Concomitant]
  18. RESVERATROL [Concomitant]

REACTIONS (2)
  - Extra dose administered [None]
  - Incorrect drug administration duration [None]
